FAERS Safety Report 6252505-9 (Version None)
Quarter: 2009Q2

REPORT INFORMATION
  Report Type: 
  Country: None (occurrence: None)
  Receive Date: 20090629
  Receipt Date: 20090629
  Transmission Date: 20091009
  Serious: Yes (Disabling)
  Sender: FDA-Public Use
  Company Number: None

PATIENT
  Age: 54 Year
  Sex: Female

DRUGS (2)
  1. ZICAM - MATRIXX [Suspect]
     Indication: NASOPHARYNGITIS
     Dates: start: 20041201
  2. ZICAM - MATRIXX [Suspect]
     Indication: NASOPHARYNGITIS
     Dates: start: 20050301

REACTIONS (1)
  - ANOSMIA [None]
